FAERS Safety Report 5820069-7 (Version None)
Quarter: 2008Q3

REPORT INFORMATION
  Report Type: 
  Country: None (occurrence: None)
  Receive Date: 20080724
  Receipt Date: 20080715
  Transmission Date: 20090109
  Serious: Yes (Life-Threatening)
  Sender: FDA-Public Use
  Company Number: NL-JNJFOC-20080704138

PATIENT
  Sex: Female
  Weight: 58 kg

DRUGS (4)
  1. REMICADE [Suspect]
     Indication: RHEUMATOID ARTHRITIS
     Route: 042
  2. METHOTREXATE [Suspect]
     Indication: RHEUMATOID ARTHRITIS
  3. FOSOVANCE [Concomitant]
  4. CALCICHEW [Concomitant]

REACTIONS (1)
  - LUNG NEOPLASM MALIGNANT [None]
